FAERS Safety Report 13569652 (Version 2)
Quarter: 2017Q2

REPORT INFORMATION
  Report Type: Spontaneous
  Country: GB (occurrence: GB)
  Receive Date: 20170522
  Receipt Date: 20170605
  Transmission Date: 20170830
  Serious: Yes (Other)
  Sender: FDA-Public Use
  Company Number: GB-GILEAD-2017-0273109

PATIENT
  Age: 55 Year
  Sex: Female
  Weight: 64.6 kg

DRUGS (2)
  1. TRUVADA [Suspect]
     Active Substance: EMTRICITABINE\TENOFOVIR DISOPROXIL FUMARATE
     Indication: ASYMPTOMATIC HIV INFECTION
     Dosage: 245
     Route: 048
     Dates: start: 20170418, end: 20170503
  2. EFAVIRENZ [Concomitant]
     Active Substance: EFAVIRENZ
     Dosage: 600 MG, UNK
     Route: 065

REACTIONS (6)
  - Product physical issue [Unknown]
  - Product taste abnormal [Unknown]
  - Rash erythematous [Not Recovered/Not Resolved]
  - Papule [Not Recovered/Not Resolved]
  - Headache [Recovered/Resolved]
  - Rash pruritic [Not Recovered/Not Resolved]

NARRATIVE: CASE EVENT DATE: 20170419
